FAERS Safety Report 12085302 (Version 1)
Quarter: 2016Q1

REPORT INFORMATION
  Report Type: Spontaneous
  Country: CZ (occurrence: CZ)
  Receive Date: 20160217
  Receipt Date: 20160217
  Transmission Date: 20160526
  Serious: Yes (Hospitalization, Other)
  Sender: FDA-Public Use
  Company Number: CZ-WATSON-2016-02536

PATIENT
  Age: 34 Year
  Sex: Female
  Weight: 62 kg

DRUGS (3)
  1. CITALOPRAM [Concomitant]
     Active Substance: CITALOPRAM HYDROBROMIDE
     Indication: ANTIDEPRESSANT THERAPY
     Dosage: UNK UNK, DAILY
     Route: 048
     Dates: start: 20150619
  2. ANTABUSE [Suspect]
     Active Substance: DISULFIRAM
     Indication: ALCOHOLISM
     Dosage: 400 MG, 2/WEEK
     Route: 048
     Dates: start: 20150508, end: 20150714
  3. TRIQUILAR [Concomitant]
     Active Substance: DROSPIRENONE\ETHINYL ESTRADIOL
     Indication: ORAL CONTRACEPTION
     Dosage: 1 DF, DAILY
     Route: 048
     Dates: start: 20150518

REACTIONS (6)
  - Pruritus [Unknown]
  - Somnolence [Unknown]
  - Chromaturia [Unknown]
  - Fatigue [Unknown]
  - Drug-induced liver injury [Unknown]
  - Jaundice [Unknown]

NARRATIVE: CASE EVENT DATE: 20150708
